FAERS Safety Report 20426888 (Version 4)
Quarter: 2022Q4

REPORT INFORMATION
  Report Type: Report from Study
  Country: GB (occurrence: GB)
  Receive Date: 20220204
  Receipt Date: 20221123
  Transmission Date: 20230112
  Serious: Yes (Hospitalization, Other)
  Sender: FDA-Public Use
  Company Number: GB-CELLTRION INC.-2022GB000905

PATIENT

DRUGS (36)
  1. TRASTUZUMAB [Suspect]
     Active Substance: TRASTUZUMAB
     Indication: Breast cancer metastatic
     Dosage: 651 MG, EVERY 3 WEEKS
     Route: 042
     Dates: start: 20171129, end: 20210903
  2. TRASTUZUMAB [Suspect]
     Active Substance: TRASTUZUMAB
     Dosage: 651 MG, EVERY 3 WEEKS
     Route: 042
     Dates: start: 20171129, end: 20210903
  3. TRASTUZUMAB [Suspect]
     Active Substance: TRASTUZUMAB
     Dosage: 882 MG, EVERY 3 WEEKS  (CUMULATIVE DOSE: 60898.25 MG)
     Route: 042
     Dates: start: 20171108, end: 20171129
  4. TRASTUZUMAB [Suspect]
     Active Substance: TRASTUZUMAB
     Dosage: 882 MG, EVERY 3 WEEKS  (CUMULATIVE DOSE: 60898.25 MG)
     Route: 042
     Dates: start: 20171108, end: 20171129
  5. DOCETAXEL [Suspect]
     Active Substance: DOCETAXEL
     Indication: Breast cancer metastatic
     Dosage: 148 MILLIGRAM EVERY 3 WEEKS
     Route: 042
     Dates: start: 20171108, end: 20180131
  6. PERTUZUMAB [Suspect]
     Active Substance: PERTUZUMAB
     Indication: Breast cancer metastatic
     Dosage: 840 MG EVERY 3 WEEKS
     Route: 042
     Dates: start: 20171108, end: 20171129
  7. PERTUZUMAB [Suspect]
     Active Substance: PERTUZUMAB
     Dosage: 840 MG EVERY 3 WEEKS
     Route: 042
     Dates: start: 20171108, end: 20171129
  8. PERTUZUMAB [Suspect]
     Active Substance: PERTUZUMAB
     Dosage: 840 MG EVERY 3 WEEKS
     Route: 042
     Dates: start: 20171108, end: 20171129
  9. PERTUZUMAB [Suspect]
     Active Substance: PERTUZUMAB
     Dosage: 420 MG EVERY 3 WEEKS (CUMULATIVE DOSE: 28579.166 MG)
     Route: 042
     Dates: start: 20171129, end: 20210924
  10. PERTUZUMAB [Suspect]
     Active Substance: PERTUZUMAB
     Dosage: 420 MG EVERY 3 WEEKS (CUMULATIVE DOSE: 28579.166 MG)
     Route: 042
     Dates: start: 20171129, end: 20210924
  11. PERTUZUMAB [Suspect]
     Active Substance: PERTUZUMAB
     Dosage: 420 MG EVERY 3 WEEKS (CUMULATIVE DOSE: 28579.166 MG)
     Route: 042
     Dates: start: 20171129, end: 20210924
  12. PERTUZUMAB [Suspect]
     Active Substance: PERTUZUMAB
     Dosage: 840 MILLIGRAM EVERY 3 WEEKS (CUMULATIVE DOSE: 42918.332 MG)
     Route: 042
     Dates: start: 20181120
  13. PERTUZUMAB [Suspect]
     Active Substance: PERTUZUMAB
     Dosage: 840 MILLIGRAM EVERY 3 WEEKS (CUMULATIVE DOSE: 42918.332 MG)
     Route: 042
     Dates: start: 20181120
  14. PERTUZUMAB [Suspect]
     Active Substance: PERTUZUMAB
     Dosage: 840 MILLIGRAM EVERY 3 WEEKS (CUMULATIVE DOSE: 42918.332 MG)
     Route: 042
     Dates: start: 20181120
  15. CALCIUM CARBONATE [Concomitant]
     Active Substance: CALCIUM CARBONATE
     Dosage: 2 DOSAGE FORM, QD (DOSAGE TEXT: 1,5G + 400 UNITS)
     Route: 048
  16. BECLOMETHASONE DIPROPIONATE [Concomitant]
     Active Substance: BECLOMETHASONE DIPROPIONATE
     Dosage: 2, QD (DOSAGE TEXT: 2 PUFF)
  17. CLONAZEPAM [Concomitant]
     Active Substance: CLONAZEPAM
     Dosage: 250 MILLIGRAM, QD
     Route: 048
     Dates: start: 202006
  18. ERYTHROMYCIN [Concomitant]
     Active Substance: ERYTHROMYCIN
     Indication: Vascular device infection
     Dosage: 2000 MILLIGRAM, QD
     Route: 048
     Dates: start: 2020, end: 202007
  19. LACTULOSE [Concomitant]
     Active Substance: LACTULOSE
     Dosage: 20 MILLILITER, QD
     Route: 048
  20. LINEZOLID [Concomitant]
     Active Substance: LINEZOLID
     Indication: Vascular device infection
     Dosage: 1200 MILLIGRAM, QD
     Route: 048
     Dates: start: 20191125, end: 20191130
  21. METFORMIN [Concomitant]
     Active Substance: METFORMIN HYDROCHLORIDE
     Dosage: 1000 MILLIGRAM, QD
  22. MIRTAZAPINE [Concomitant]
     Active Substance: MIRTAZAPINE
     Dosage: 45 MILLIGRAM, QD
     Route: 048
  23. MORPHINE [Concomitant]
     Active Substance: MORPHINE
     Indication: Vomiting
     Dosage: UNK
  24. MORPHINE [Concomitant]
     Active Substance: MORPHINE
     Indication: Diarrhoea
     Dosage: 5 MILLIGRAM
     Route: 042
     Dates: start: 20181002, end: 20181002
  25. NITROFURANTOIN [Concomitant]
     Active Substance: NITROFURANTOIN
     Indication: Urinary tract infection
     Dosage: 200 MILLIGRAM, QD
     Route: 048
     Dates: start: 20181103, end: 20181109
  26. OMEPRAZOLE [Concomitant]
     Active Substance: OMEPRAZOLE
     Dosage: 40 MILLIGRAM, QD
     Route: 048
     Dates: start: 201710
  27. ONDANSETRON [Concomitant]
     Active Substance: ONDANSETRON
     Indication: Diarrhoea
     Dosage: 4 MILLIGRAM
     Route: 042
     Dates: start: 20181002, end: 20181002
  28. ONDANSETRON [Concomitant]
     Active Substance: ONDANSETRON
     Indication: Vomiting
     Dosage: UNK
  29. OXYCODONE [Concomitant]
     Active Substance: OXYCODONE
     Indication: Pain
     Dosage: 220 MILLIGRAM, QD
     Route: 048
  30. QUETIAPINE [Concomitant]
     Active Substance: QUETIAPINE
     Indication: Depressed mood
     Dosage: 100 MILLIGRAM, QD
     Route: 048
     Dates: end: 2020
  31. QUETIAPINE [Concomitant]
     Active Substance: QUETIAPINE
     Dosage: 150 MILLIGRAM, QD
     Route: 048
     Dates: start: 2020
  32. RAMIPRIL [Concomitant]
     Active Substance: RAMIPRIL
     Dosage: 1.25 MILLIGRAM, QD
     Route: 048
  33. ALBUTEROL [Concomitant]
     Active Substance: ALBUTEROL
     Dosage: 1, AS NECESSARY (DOSAGE TEXT: 2 PUFF)
  34. SIMVASTATIN [Concomitant]
     Active Substance: SIMVASTATIN
     Dosage: 40 MILLIGRAM, QD
     Route: 048
  35. SODIUM PICOSULFATE [Concomitant]
     Active Substance: SODIUM PICOSULFATE
     Indication: Constipation
     Dosage: 1, QD (DOSAGE TEXT: 10 OTHER)
     Route: 048
  36. VANCOMYCIN [Concomitant]
     Active Substance: VANCOMYCIN
     Indication: Vascular device infection
     Dosage: 3500 MILLIGRAM, QD
     Route: 042
     Dates: start: 20200612, end: 202006

REACTIONS (5)
  - Appendicitis [Recovered/Resolved]
  - Abdominal pain [Recovered/Resolved]
  - Vascular device infection [Recovered/Resolved]
  - COVID-19 [Recovered/Resolved with Sequelae]
  - Asthma [Recovered/Resolved with Sequelae]

NARRATIVE: CASE EVENT DATE: 20211028
